FAERS Safety Report 21029559 (Version 1)
Quarter: 2022Q2

REPORT INFORMATION
  Report Type: Spontaneous
  Country: US (occurrence: US)
  Receive Date: 20220630
  Receipt Date: 20220630
  Transmission Date: 20220721
  Serious: Yes (Hospitalization, Other)
  Sender: FDA-Public Use
  Company Number: TU22-1111437

PATIENT
  Sex: Female
  Weight: 116 kg

DRUGS (28)
  1. NORCO [Suspect]
     Active Substance: ACETAMINOPHEN\HYDROCODONE BITARTRATE
     Indication: Pain
     Dosage: 1 DF, Q6HR, AS NEEDED
     Route: 048
  2. XTAMPZA ER [Suspect]
     Active Substance: OXYCODONE
     Indication: Pain
     Dosage: UNK
  3. XTAMPZA ER [Suspect]
     Active Substance: OXYCODONE
     Dosage: 27 MG, TID
     Route: 048
     Dates: start: 202204
  4. XTAMPZA ER [Suspect]
     Active Substance: OXYCODONE
     Dosage: 27 MG, BID
     Route: 048
     Dates: start: 20200609, end: 20220403
  5. LYRICA [Suspect]
     Active Substance: PREGABALIN
     Indication: Neuropathy peripheral
     Dosage: 200 MG, TID
     Route: 048
  6. SEROQUEL [Concomitant]
     Active Substance: QUETIAPINE FUMARATE
     Dosage: 50-150 MG, QHS
     Route: 048
  7. PROAIR HFA [Concomitant]
     Active Substance: ALBUTEROL SULFATE
     Dosage: 180 ?G, Q4HR, AS NEEDED
  8. ASPIRIN [Concomitant]
     Active Substance: ASPIRIN
     Dosage: 81 MG, QD
     Route: 048
  9. LIPITOR [Concomitant]
     Active Substance: ATORVASTATIN CALCIUM
     Dosage: 80 MG, QD
     Route: 048
  10. BUSPAR [Concomitant]
     Active Substance: BUSPIRONE HYDROCHLORIDE
     Dosage: 7.5 MG, TID
     Route: 048
  11. CALCIUM-MAGNESIUM-ZINC [Concomitant]
     Dosage: 1 DF, TID
     Route: 048
  12. TEMOVATE [Concomitant]
     Active Substance: CLOBETASOL PROPIONATE
     Dosage: 0.05 %, BID
     Route: 003
  13. VITAMIN B12 [Concomitant]
     Active Substance: CYANOCOBALAMIN
     Dosage: 1000 ?G, QD
     Route: 048
  14. VOLTAREN [Concomitant]
     Active Substance: DICLOFENAC SODIUM
     Dosage: 1 %, UNKNOWN
  15. DULAGLUTIDE [Concomitant]
     Active Substance: DULAGLUTIDE
     Dosage: 1.5/0.5 MILLIGRAM PER MILLILITRE
  16. FERATAB [Concomitant]
     Dosage: 325 MG, QD
     Route: 048
  17. PROZAC [Concomitant]
     Active Substance: FLUOXETINE HYDROCHLORIDE
     Dosage: 60 MG, QAM
     Route: 048
  18. FLONASE [Concomitant]
     Active Substance: FLUTICASONE PROPIONATE
     Dosage: 100 ?G, QD
     Route: 045
  19. LASIX [Concomitant]
     Active Substance: FUROSEMIDE
     Dosage: 20 MG, QD, AS NEEDED
     Route: 048
  20. EMGALITY [Concomitant]
     Active Substance: GALCANEZUMAB-GNLM
     Dosage: 120 MG, Q MONTH
     Route: 023
  21. NOVOLOG MIX FLEXPEN 70/30 [Concomitant]
     Dosage: 50 UNITS, BID, AS NEEDED
     Route: 023
  22. LISINOPRIL [Concomitant]
     Active Substance: LISINOPRIL
     Dosage: 2.5 MG, QD
     Route: 048
  23. MAGNESIUM OXIDE [Concomitant]
     Active Substance: MAGNESIUM OXIDE
     Dosage: 800 MG, QD
     Route: 048
  24. GLUCOPHAGE [Concomitant]
     Active Substance: METFORMIN HYDROCHLORIDE
     Dosage: 1000 MG, BID, WITH FOOD
     Route: 048
  25. MYCOSTATIN 1000 [Concomitant]
     Dosage: 2-3 TIMES DAILY
     Route: 003
  26. NURTEC ODT [Concomitant]
     Active Substance: RIMEGEPANT SULFATE
     Dosage: 75 MG, UNKNOWN, ALLOWED TO DISSOLVE THEN SWALLOWED ONCE AS NEEDED
     Route: 048
  27. .ALPHA.-TOCOPHEROL [Concomitant]
     Active Substance: .ALPHA.-TOCOPHEROL
     Dosage: 400 IU, QD
     Route: 048
  28. XALATAN [Concomitant]
     Active Substance: LATANOPROST
     Dosage: 0.005 %, UNKNOWN
     Dates: end: 20220424

REACTIONS (9)
  - Pneumonia [Unknown]
  - Encephalopathy [Recovered/Resolved]
  - Escherichia urinary tract infection [Recovered/Resolved]
  - Acute kidney injury [Recovered/Resolved]
  - Pulmonary congestion [Recovered/Resolved]
  - Dyskinesia [Recovered/Resolved]
  - Respiratory failure [Recovering/Resolving]
  - Somnolence [Recovering/Resolving]
  - Unresponsive to stimuli [Recovered/Resolved]

NARRATIVE: CASE EVENT DATE: 20220421
